FAERS Safety Report 7034577-7 (Version None)
Quarter: 2010Q4

REPORT INFORMATION
  Report Type: 
  Country: None (occurrence: None)
  Receive Date: 20101008
  Receipt Date: 20100929
  Transmission Date: 20110411
  Serious: Yes (Other)
  Sender: FDA-Public Use
  Company Number: CH-JNJFOC-20100908812

PATIENT
  Age: 76 Year
  Sex: Female
  Weight: 65 kg

DRUGS (2)
  1. REMICADE [Suspect]
     Indication: PRODUCT USED FOR UNKNOWN INDICATION
     Route: 042
  2. REMICADE [Suspect]
     Route: 042

REACTIONS (2)
  - DIVERTICULITIS [None]
  - WEIGHT DECREASED [None]
